FAERS Safety Report 22788454 (Version 9)
Quarter: 2025Q2

REPORT INFORMATION
  Report Type: Report from Study
  Country: BR (occurrence: BR)
  Receive Date: 20230804
  Receipt Date: 20250619
  Transmission Date: 20250716
  Serious: Yes (Hospitalization, Other)
  Sender: TAKEDA
  Company Number: BR-TAKEDA-2023TUS033480

PATIENT
  Age: 53 Year
  Sex: Male
  Weight: 52 kg

DRUGS (3)
  1. VEDOLIZUMAB [Suspect]
     Active Substance: VEDOLIZUMAB
     Indication: Colitis ulcerative
  2. VEDOLIZUMAB [Suspect]
     Active Substance: VEDOLIZUMAB
  3. MESALAMINE [Suspect]
     Active Substance: MESALAMINE
     Indication: Colitis ulcerative
     Dosage: 1200 MILLIGRAM, Q12H

REACTIONS (15)
  - Rectal haemorrhage [Not Recovered/Not Resolved]
  - Colitis ulcerative [Recovering/Resolving]
  - Skeletal injury [Unknown]
  - Haematochezia [Recovered/Resolved]
  - Product availability issue [Unknown]
  - Anaemia [Not Recovered/Not Resolved]
  - Product dose omission issue [Unknown]
  - Weight decreased [Unknown]
  - Diarrhoea [Unknown]
  - Anal haemorrhage [Unknown]
  - Road traffic accident [Unknown]
  - Abdominal pain [Not Recovered/Not Resolved]
  - Muscle spasms [Unknown]
  - Inappropriate schedule of product administration [Unknown]
  - Multiple injuries [Unknown]

NARRATIVE: CASE EVENT DATE: 20240704
